FAERS Safety Report 5816723-3 (Version None)
Quarter: 2008Q3

REPORT INFORMATION
  Report Type: 
  Country: None (occurrence: None)
  Receive Date: 20080721
  Receipt Date: 20080708
  Transmission Date: 20090109
  Serious: Yes (Hospitalization, Other)
  Sender: FDA-Public Use
  Company Number: US-ELI_LILLY_AND_COMPANY-US200807002141

PATIENT
  Age: 34 Year
  Sex: Female

DRUGS (8)
  1. CYMBALTA [Suspect]
     Indication: DEPRESSION
     Dosage: 30 MG, 2/D
     Dates: start: 20080301
  2. CYMBALTA [Suspect]
     Dosage: 60 MG, 2/D
     Dates: end: 20080601
  3. KLONOPIN [Concomitant]
     Indication: ANXIETY
     Dosage: 0.5 MG, 4/D
  4. REMERON [Concomitant]
     Indication: ANXIETY
     Dosage: 45 MG, DAILY (1/D)
  5. INDERAL [Concomitant]
     Dosage: 20 MG, EACH MORNING
  6. INDERAL [Concomitant]
     Dosage: 40 MG, EACH EVENING
  7. SEROQUEL [Concomitant]
     Dosage: 50 MG, DAILY (1/D)
  8. SEROQUEL [Concomitant]
     Dosage: 600 MG, EACH EVENING

REACTIONS (4)
  - AGGRESSION [None]
  - AMNESIA [None]
  - ANGER [None]
  - PHYSICAL ASSAULT [None]
